FAERS Safety Report 6700070-1 (Version None)
Quarter: 2010Q2

REPORT INFORMATION
  Report Type: 
  Country: None (occurrence: None)
  Receive Date: 20100427
  Receipt Date: 20100427
  Transmission Date: 20101027
  Serious: No
  Sender: FDA-Public Use
  Company Number: None

PATIENT
  Age: 46 Year
  Sex: Female
  Weight: 54.4316 kg

DRUGS (1)
  1. EFFEXOR [Suspect]
     Dosage: 75MG
     Dates: start: 20100417, end: 20100417

REACTIONS (6)
  - DRUG HYPERSENSITIVITY [None]
  - DYSKINESIA [None]
  - FORMICATION [None]
  - INSOMNIA [None]
  - SPEECH DISORDER [None]
  - TREMOR [None]
